FAERS Safety Report 11712904 (Version 1)
Quarter: 2015Q4

REPORT INFORMATION
  Report Type: Spontaneous
  Country: US (occurrence: US)
  Receive Date: 20151108
  Receipt Date: 20151108
  Transmission Date: 20160304
  Serious: Yes (Hospitalization, Other)
  Sender: FDA-Public Use
  Company Number: US-APOTEX-2015AP008479

PATIENT
  Age: 48 Year
  Sex: Male

DRUGS (3)
  1. ESCITALOPRAM [Concomitant]
     Active Substance: ESCITALOPRAM OXALATE
     Indication: SCHIZOAFFECTIVE DISORDER BIPOLAR TYPE
     Route: 065
  2. QUETIAPINE FUMARATE. [Suspect]
     Active Substance: QUETIAPINE FUMARATE
     Indication: SCHIZOAFFECTIVE DISORDER BIPOLAR TYPE
     Route: 065
  3. CLOZAPINE. [Suspect]
     Active Substance: CLOZAPINE
     Indication: SCHIZOAFFECTIVE DISORDER BIPOLAR TYPE
     Route: 065

REACTIONS (13)
  - Seizure [Unknown]
  - Pyrexia [Unknown]
  - Catatonia [Recovered/Resolved]
  - Respiratory failure [Unknown]
  - Compartment syndrome [Unknown]
  - Thermal burn [Unknown]
  - Embolic stroke [Unknown]
  - Acute kidney injury [Unknown]
  - Fall [Unknown]
  - Rhabdomyolysis [Unknown]
  - Hypotension [Unknown]
  - Aspiration [Unknown]
  - Mental status changes [Unknown]
